FAERS Safety Report 7380681-3 (Version None)
Quarter: 2011Q1

REPORT INFORMATION
  Report Type: 
  Country: None (occurrence: None)
  Receive Date: 20110329
  Receipt Date: 20110318
  Transmission Date: 20110831
  Serious: Yes (Other)
  Sender: FDA-Public Use
  Company Number: FR-BAXTER-2011BH007475

PATIENT
  Age: 8 Year
  Sex: Female

DRUGS (5)
  1. EPIRUBICIN HYDROCHLORIDE [Suspect]
     Indication: DRUG EXPOSURE DURING PREGNANCY
     Route: 064
     Dates: start: 20030602, end: 20030711
  2. METHYLPREDNISOLONE [Suspect]
     Indication: DRUG EXPOSURE DURING PREGNANCY
     Route: 064
     Dates: start: 20030602, end: 20030711
  3. CYCLOPHOSPHAMIDE [Suspect]
     Indication: DRUG EXPOSURE DURING PREGNANCY
     Route: 064
     Dates: start: 20030602, end: 20030711
  4. FLUOROURACIL [Suspect]
     Indication: DRUG EXPOSURE DURING PREGNANCY
     Route: 064
     Dates: start: 20030602, end: 20030711
  5. ONDANSETRON, UNSPECIFIED [Suspect]
     Indication: DRUG EXPOSURE DURING PREGNANCY
     Route: 064
     Dates: start: 20030602, end: 20030711

REACTIONS (2)
  - PRECOCIOUS PUBERTY [None]
  - DRUG EXPOSURE DURING PREGNANCY [None]
